FAERS Safety Report 10444668 (Version 3)
Quarter: 2015Q4

REPORT INFORMATION
  Report Type: Spontaneous
  Country: US (occurrence: US)
  Receive Date: 20140910
  Receipt Date: 20151228
  Transmission Date: 20160304
  Serious: Yes (Other)
  Sender: FDA-Public Use
  Company Number: US-BAYER-2014-130416

PATIENT
  Age: 28 Year
  Sex: Female
  Weight: 57 kg

DRUGS (2)
  1. MIRENA [Suspect]
     Active Substance: LEVONORGESTREL
     Indication: CONTRACEPTION
     Dosage: 20 MCG/24HR, CONT
     Route: 015
     Dates: start: 20121109, end: 20131017
  2. LOESTRIN NOS [Concomitant]
     Active Substance: ETHINYL ESTRADIOL\NORETHINDRONE ACETATE

REACTIONS (15)
  - Injury [None]
  - Mood altered [None]
  - Emotional distress [None]
  - Back pain [None]
  - Fatigue [None]
  - Acne [None]
  - Alopecia [None]
  - Migraine [None]
  - Medical device discomfort [None]
  - Device dislocation [None]
  - Lethargy [None]
  - Embedded device [None]
  - Depression [None]
  - Feeling abnormal [None]
  - Irritability [None]

NARRATIVE: CASE EVENT DATE: 201211
